FAERS Safety Report 7659734-8 (Version None)
Quarter: 2011Q3

REPORT INFORMATION
  Report Type: 
  Country: None (occurrence: None)
  Receive Date: 20110805
  Receipt Date: 20100917
  Transmission Date: 20111222
  Serious: No
  Sender: FDA-Public Use
  Company Number: US-ABBOTT-10P-163-0672649-00

PATIENT
  Sex: Female
  Weight: 72.64 kg

DRUGS (10)
  1. DEPAKOTE ER [Suspect]
     Dates: start: 20100201, end: 20100401
  2. SIMVASTATIN [Concomitant]
     Indication: PRODUCT USED FOR UNKNOWN INDICATION
  3. VERAPAMIL [Concomitant]
     Indication: PRODUCT USED FOR UNKNOWN INDICATION
  4. CYTOMEL [Concomitant]
     Indication: PRODUCT USED FOR UNKNOWN INDICATION
  5. XANAX [Concomitant]
     Indication: ANXIETY
  6. PROZAC [Concomitant]
     Indication: DEPRESSION
  7. LEVOTHYROXINE SODIUM [Concomitant]
     Indication: HYPOTHYROIDISM
     Dates: end: 20100915
  8. TOPAMAX [Concomitant]
     Indication: MIGRAINE
     Dates: start: 20080101
  9. DEPAKOTE ER [Suspect]
     Indication: DEPRESSION
     Dates: start: 20100201, end: 20100521
  10. FOLIC ACID [Concomitant]
     Indication: PRODUCT USED FOR UNKNOWN INDICATION

REACTIONS (12)
  - DRUG INEFFECTIVE [None]
  - HAEMOGLOBIN DECREASED [None]
  - HAIR TEXTURE ABNORMAL [None]
  - IRRITABILITY [None]
  - FEELING ABNORMAL [None]
  - RED BLOOD CELL COUNT DECREASED [None]
  - HAEMATOCRIT DECREASED [None]
  - FALL [None]
  - WEIGHT INCREASED [None]
  - VITAMIN D DECREASED [None]
  - FEELING OF DESPAIR [None]
  - PLATELET COUNT INCREASED [None]
